FAERS Safety Report 11950719 (Version 5)
Quarter: 2017Q1

REPORT INFORMATION
  Report Type: Spontaneous
  Country: US (occurrence: US)
  Receive Date: 20160126
  Receipt Date: 20170217
  Transmission Date: 20170428
  Serious: No
  Sender: FDA-Public Use
  Company Number: US-PFIZER INC-2016021504

PATIENT
  Age: 53 Year
  Sex: Female

DRUGS (12)
  1. NABUMETONE. [Concomitant]
     Active Substance: NABUMETONE
     Indication: POST-TRAUMATIC NECK SYNDROME
     Dosage: 750 MG, 2X/DAY
     Route: 048
     Dates: start: 20150730
  2. BACLOFEN. [Concomitant]
     Active Substance: BACLOFEN
     Indication: POST-TRAUMATIC NECK SYNDROME
     Dosage: 10 MG, AS NEEDED, (Q8H)
     Dates: start: 20150730
  3. KLONOPIN [Concomitant]
     Active Substance: CLONAZEPAM
     Dosage: 1 MG, 2X/DAY
     Route: 048
  4. XYZAL [Concomitant]
     Active Substance: LEVOCETIRIZINE DIHYDROCHLORIDE
     Dosage: 5 MG, 1X/DAY, (QHS)
     Route: 048
  5. FLONASE [Concomitant]
     Active Substance: FLUTICASONE PROPIONATE
     Dosage: 100 MG, UNK (2X50 MG)
     Dates: start: 20120715
  6. SINGULAIR [Concomitant]
     Active Substance: MONTELUKAST SODIUM
     Dosage: 10 MG, 1X/DAY
     Route: 048
  7. AMITRIPTYLINE HCL [Concomitant]
     Active Substance: AMITRIPTYLINE
     Indication: ANXIETY
     Dosage: 10 MG, 1X/DAY, (QHS)
  8. AMITRIPTYLINE HCL [Concomitant]
     Active Substance: AMITRIPTYLINE
     Dosage: 1 MG, 1X/DAY (AT NIGHT)
     Dates: start: 201111
  9. LAMICTAL [Concomitant]
     Active Substance: LAMOTRIGINE
     Dosage: 150 MG, 1X/DAY, (1 1/2 QHS)
     Route: 048
  10. PRILOSEC [Concomitant]
     Active Substance: OMEPRAZOLE MAGNESIUM
     Dosage: 20 MG, DAILY
     Route: 048
  11. LYRICA [Suspect]
     Active Substance: PREGABALIN
     Dosage: 75 MG, 2X/DAY
     Route: 048
     Dates: start: 20150104
  12. FLONASE [Concomitant]
     Active Substance: FLUTICASONE PROPIONATE
     Indication: DRUG HYPERSENSITIVITY
     Dosage: UNK, DAILY (50 MCG/ACT SUSP 2 SQUIRTS DAILY)

REACTIONS (2)
  - Mobility decreased [Unknown]
  - Pain [Unknown]
